FAERS Safety Report 6341312-4 (Version None)
Quarter: 2009Q3

REPORT INFORMATION
  Report Type: 
  Country: None (occurrence: None)
  Receive Date: 20090904
  Receipt Date: 20090827
  Transmission Date: 20100115
  Serious: Yes (Life-Threatening, Hospitalization)
  Sender: FDA-Public Use
  Company Number: FR-ELI_LILLY_AND_COMPANY-FR200905005960

PATIENT
  Sex: Female
  Weight: 116 kg

DRUGS (19)
  1. BYETTA [Suspect]
     Indication: TYPE 2 DIABETES MELLITUS
     Dosage: 10 UG, 2/D
     Route: 058
     Dates: start: 20080601, end: 20090501
  2. PREVISCAN [Concomitant]
     Dosage: UNK, UNKNOWN
     Route: 048
     Dates: end: 20090417
  3. PREVISCAN [Concomitant]
     Dosage: 0.5 D/F, DAILY (1/D)
     Route: 048
     Dates: start: 20090417, end: 20090401
  4. PREVISCAN [Concomitant]
     Dosage: 0.25 D/F, DAILY (1/D)
     Route: 048
     Dates: start: 20090401, end: 20090501
  5. GLUCOPHAGE [Concomitant]
     Dosage: 200 G, DAILY (1/D)
     Route: 048
     Dates: end: 20090501
  6. GLUCOPHAGE [Concomitant]
     Dosage: 3 D/F, DAILY (1/D)
     Route: 048
     Dates: start: 20090501
  7. NOVONORM [Concomitant]
     Dosage: 2 MG, 3/D
     Route: 048
  8. TAHOR [Concomitant]
     Dosage: 40 MG, DAILY (1/D)
     Route: 048
  9. ARIMIDEX [Concomitant]
     Dosage: 1 D/F, DAILY (1/D)
     Route: 048
  10. KARDEGIC /00002703/ [Concomitant]
     Dosage: 75 MG, DAILY (1/D)
     Route: 048
  11. ALDACTONE [Concomitant]
     Dosage: 25 MG, DAILY (1/D)
     Route: 048
  12. CARDENSIEL [Concomitant]
     Dosage: 5 MG, DAILY (1/D)
     Route: 048
  13. INIPOMP [Concomitant]
     Dosage: 20 MG, DAILY (1/D)
     Route: 048
  14. CORDARONE [Concomitant]
     Dosage: UNK, UNKNOWN
     Route: 048
  15. COVERSYL [Concomitant]
     Dosage: 4 MG, DAILY (1/D)
     Route: 048
  16. LASIX [Concomitant]
     Dosage: 40 MG, DAILY (1/D)
     Route: 048
  17. DEPAKOTE [Concomitant]
     Dosage: 500 MG, DAILY (1/D)
     Route: 048
  18. DIFFU K [Concomitant]
     Dosage: 1200 MG, DAILY (1/D)
     Route: 048
  19. LEVOTHYROXINE SODIUM [Concomitant]
     Dosage: UNK, UNKNOWN
     Route: 048

REACTIONS (4)
  - ANAEMIA [None]
  - COLONIC POLYP [None]
  - DRUG LEVEL ABOVE THERAPEUTIC [None]
  - MELAENA [None]
